FAERS Safety Report 9477080 (Version 1)
Quarter: 2013Q3

REPORT INFORMATION
  Report Type: Spontaneous
  Country: GB (occurrence: GB)
  Receive Date: 20130826
  Receipt Date: 20130826
  Transmission Date: 20140515
  Serious: Yes (Other)
  Sender: FDA-Public Use
  Company Number: GB-TEVA-427331ISR

PATIENT
  Age: 60 Year
  Sex: Male
  Weight: 101.6 kg

DRUGS (2)
  1. CETIRIZINE [Suspect]
     Indication: ARTHROPOD BITE
     Dosage: 10 MILLIGRAM DAILY;
     Route: 048
  2. EFEXOR [Suspect]
     Indication: DEPRESSION
     Dosage: 75 MILLIGRAM DAILY;
     Route: 048

REACTIONS (5)
  - Confusional state [Recovered/Resolved]
  - Aggression [Recovered/Resolved]
  - Disturbance in attention [Recovered/Resolved]
  - Drug interaction [Unknown]
  - Screaming [Unknown]
